FAERS Safety Report 8493840-3 (Version None)
Quarter: 2012Q3

REPORT INFORMATION
  Report Type: 
  Country: None (occurrence: None)
  Receive Date: 20120706
  Receipt Date: 20120630
  Transmission Date: 20120928
  Serious: Yes (Hospitalization)
  Sender: FDA-Public Use
  Company Number: PHHY2012JP056612

PATIENT
  Sex: Male

DRUGS (3)
  1. CARBOPLATIN [Suspect]
     Indication: ADENOSQUAMOUS CELL LUNG CANCER STAGE III
     Dosage: AUC 6 MIN?MG/ML
     Route: 042
  2. PACLITAXEL [Suspect]
     Indication: ADENOSQUAMOUS CELL LUNG CANCER STAGE III
     Dosage: 200 MG/M2, UNK
     Route: 042
  3. DEXAMETHASONE [Concomitant]
     Indication: ANTIEMETIC SUPPORTIVE CARE
     Dosage: 6 MG, UNK
     Route: 042

REACTIONS (7)
  - EYELID PTOSIS [None]
  - HEADACHE [None]
  - PLATELET COUNT DECREASED [None]
  - ANAEMIA [None]
  - BLOOD ALKALINE PHOSPHATASE INCREASED [None]
  - POSTERIOR REVERSIBLE ENCEPHALOPATHY SYNDROME [None]
  - BLOOD PRESSURE INCREASED [None]
